FAERS Safety Report 9797699 (Version 1)
Quarter: 2014Q1

REPORT INFORMATION
  Report Type: Spontaneous
  Country: US (occurrence: US)
  Receive Date: 20140106
  Receipt Date: 20140106
  Transmission Date: 20141002
  Serious: No
  Sender: FDA-Public Use
  Company Number: US-PFIZER INC-2014001229

PATIENT
  Age: 63 Year
  Sex: Female
  Weight: 50.79 kg

DRUGS (3)
  1. LYRICA [Suspect]
     Dosage: UNK
  2. LYRICA [Suspect]
     Dosage: 100 MG, 3X/DAY
     Dates: start: 2013
  3. LEVOTHYROXINE [Concomitant]
     Indication: THYROID DISORDER
     Dosage: UNK

REACTIONS (2)
  - Local swelling [Unknown]
  - Pain [Unknown]
